FAERS Safety Report 10031812 (Version 1)
Quarter: 2014Q1

REPORT INFORMATION
  Report Type: Spontaneous
  Country: PR (occurrence: PR)
  Receive Date: 20140324
  Receipt Date: 20140324
  Transmission Date: 20141002
  Serious: No
  Sender: FDA-Public Use
  Company Number: PR-BAYER-2014-041840

PATIENT
  Age: 43 Year
  Sex: Male
  Weight: 99.77 kg

DRUGS (2)
  1. GADAVIST [Suspect]
     Indication: PATHOLOGY TEST
     Dosage: 11 CC
     Route: 042
     Dates: start: 20131110, end: 20131110
  2. GADAVIST [Suspect]
     Indication: NUCLEAR MAGNETIC RESONANCE IMAGING

REACTIONS (1)
  - Vomiting [Recovered/Resolved]
